FAERS Safety Report 7920754-7 (Version None)
Quarter: 2011Q4

REPORT INFORMATION
  Report Type: 
  Country: None (occurrence: None)
  Receive Date: 20111117
  Receipt Date: 20111110
  Transmission Date: 20120403
  Serious: Yes (Other)
  Sender: FDA-Public Use
  Company Number: JP-PFIZER INC-2011276089

PATIENT
  Sex: Male

DRUGS (2)
  1. VFEND [Suspect]
     Dosage: 300 MG, DAILY
     Route: 048
     Dates: start: 20111109
  2. VFEND [Suspect]
     Indication: BRONCHOPULMONARY ASPERGILLOSIS
     Dosage: 600 MG, DAILY
     Route: 048
     Dates: start: 20111108, end: 20111108

REACTIONS (3)
  - CHROMATOPSIA [None]
  - HALLUCINATION [None]
  - HALLUCINATION, AUDITORY [None]
